FAERS Safety Report 9674237 (Version 3)
Quarter: 2015Q4

REPORT INFORMATION
  Report Type: Report from Study
  Country: US (occurrence: US)
  Receive Date: 20131107
  Receipt Date: 20151105
  Transmission Date: 20160305
  Serious: Yes (Hospitalization, Other)
  Sender: FDA-Public Use
  Company Number: US-ABBVIE-13P-163-1053897-00

PATIENT
  Age: 66 Year
  Sex: Male

DRUGS (2)
  1. HUMIRA [Suspect]
     Active Substance: ADALIMUMAB
     Indication: PSORIASIS
  2. HUMIRA [Suspect]
     Active Substance: ADALIMUMAB
     Indication: PSORIATIC ARTHROPATHY
     Route: 058
     Dates: start: 2003, end: 201507

REACTIONS (16)
  - Dizziness [Recovered/Resolved]
  - Infection [Recovered/Resolved]
  - Soft tissue injury [Recovered/Resolved]
  - Back pain [Not Recovered/Not Resolved]
  - Arthritis [Not Recovered/Not Resolved]
  - Thrombosis [Recovered/Resolved]
  - Pulmonary embolism [Recovered/Resolved]
  - Back pain [Not Recovered/Not Resolved]
  - Faecaloma [Recovered/Resolved]
  - Lower limb fracture [Recovered/Resolved]
  - Spinal fracture [Recovered/Resolved]
  - Gastrointestinal infection [Recovered/Resolved]
  - Back pain [Recovered/Resolved]
  - Psoriasis [Not Recovered/Not Resolved]
  - Spinal compression fracture [Recovered/Resolved]
  - Fall [Recovered/Resolved]

NARRATIVE: CASE EVENT DATE: 201106
